FAERS Safety Report 17107261 (Version 1)
Quarter: 2019Q4

REPORT INFORMATION
  Report Type: Spontaneous
  Country: US (occurrence: US)
  Receive Date: 20191203
  Receipt Date: 20191203
  Transmission Date: 20200122
  Serious: No
  Sender: FDA-Public Use
  Company Number: US-ALKERMES INC.-ALK-2019-006181

PATIENT
  Age: 24 Year
  Sex: Female

DRUGS (2)
  1. VIVITROL [Suspect]
     Active Substance: NALTREXONE
     Dosage: 380 MG, QMO
     Route: 030
     Dates: start: 20191014, end: 20191014
  2. VIVITROL [Suspect]
     Active Substance: NALTREXONE
     Indication: ALCOHOLISM
     Dosage: 380 MG, QMO
     Route: 030
     Dates: start: 20191111

REACTIONS (8)
  - Substance-induced mood disorder [Unknown]
  - Road traffic accident [Recovered/Resolved]
  - Anxiety [Not Recovered/Not Resolved]
  - Withdrawal syndrome [Unknown]
  - Legal problem [Unknown]
  - Panic attack [Not Recovered/Not Resolved]
  - Muscle twitching [Not Recovered/Not Resolved]
  - Palpitations [Not Recovered/Not Resolved]

NARRATIVE: CASE EVENT DATE: 2019
